FAERS Safety Report 25499792 (Version 1)
Quarter: 2025Q2

REPORT INFORMATION
  Report Type: Spontaneous
  Country: US (occurrence: None)
  Receive Date: 20250630
  Receipt Date: 20250630
  Transmission Date: 20250716
  Serious: Yes (Disabling, Other)
  Sender: FDA-CTU
  Company Number: None

PATIENT
  Age: 38 Year
  Sex: Female
  Weight: 105.3 kg

DRUGS (7)
  1. LUPRON [Suspect]
     Active Substance: LEUPROLIDE ACETATE
     Indication: Endometriosis
  2. DETROL [Concomitant]
     Active Substance: TOLTERODINE TARTRATE
  3. OXYCODONE [Concomitant]
     Active Substance: OXYCODONE
  4. RIZATRIPTAN [Concomitant]
     Active Substance: RIZATRIPTAN
  5. SERTRALINE [Concomitant]
     Active Substance: SERTRALINE HYDROCHLORIDE
  6. PROPRANOLOL [Concomitant]
     Active Substance: PROPRANOLOL HYDROCHLORIDE
  7. QULIPTA [Concomitant]
     Active Substance: ATOGEPANT

REACTIONS (4)
  - Migraine [None]
  - Depression [None]
  - Pituitary tumour benign [None]
  - Central nervous system lesion [None]

NARRATIVE: CASE EVENT DATE: 20230401
